FAERS Safety Report 23309171 (Version 1)
Quarter: 2023Q4

REPORT INFORMATION
  Report Type: Spontaneous
  Country: US (occurrence: US)
  Receive Date: 20231218
  Receipt Date: 20231218
  Transmission Date: 20240110
  Serious: Yes (Hospitalization)
  Sender: FDA-Public Use
  Company Number: US-AMNEAL PHARMACEUTICALS-2023-AMRX-04295

PATIENT
  Sex: Female
  Weight: 7.256 kg

DRUGS (1)
  1. VIGABATRIN [Suspect]
     Active Substance: VIGABATRIN
     Indication: Product used for unknown indication
     Dosage: 3.5 ML DAILY, 7.0ML DAILY, AND 10ML DAILY
     Route: 048
     Dates: start: 20231204

REACTIONS (3)
  - Adverse event [Unknown]
  - Hypersomnia [Recovering/Resolving]
  - Fatigue [Recovering/Resolving]
